FAERS Safety Report 7921798-1 (Version None)
Quarter: 2011Q4

REPORT INFORMATION
  Report Type: 
  Country: None (occurrence: None)
  Receive Date: 20111117
  Receipt Date: 20111115
  Transmission Date: 20120403
  Serious: Yes (Other)
  Sender: FDA-Public Use
  Company Number: DE-GLAXOSMITHKLINE-D0073451A

PATIENT
  Age: 64 Year
  Sex: Male

DRUGS (1)
  1. DUTASTERIDE/TAMSULOSIN HYDROCHLORIDE [Suspect]
     Route: 048

REACTIONS (1)
  - CIRCULATORY COLLAPSE [None]
